FAERS Safety Report 12936213 (Version 1)
Quarter: 2016Q4

REPORT INFORMATION
  Report Type: Spontaneous
  Country: US (occurrence: US)
  Receive Date: 20161112
  Receipt Date: 20161112
  Transmission Date: 20170207
  Serious: Yes (Hospitalization)
  Sender: FDA-Public Use
  Company Number: None

PATIENT
  Age: 71 Year
  Sex: Male
  Weight: 88.4 kg

DRUGS (1)
  1. TESTOSTERONE INJECTIONS [Suspect]
     Active Substance: TESTOSTERONE
     Route: 030

REACTIONS (2)
  - Dyspnoea [None]
  - Rash [None]

NARRATIVE: CASE EVENT DATE: 20161111
